FAERS Safety Report 6777901-2 (Version None)
Quarter: 2010Q2

REPORT INFORMATION
  Report Type: 
  Country: None (occurrence: None)
  Receive Date: 20100618
  Receipt Date: 20100615
  Transmission Date: 20101027
  Serious: Yes (Other)
  Sender: FDA-Public Use
  Company Number: IT-BIOGENIDEC-2009BI032907

PATIENT
  Age: 38 Year
  Sex: Female
  Weight: 64 kg

DRUGS (3)
  1. NATALIZUMAB [Suspect]
     Indication: MULTIPLE SCLEROSIS
     Route: 042
     Dates: start: 20060727
  2. CALCIUM CARBONATE [Concomitant]
     Indication: OSTEOPOROSIS
     Dates: start: 20090529
  3. VITAMIN D [Concomitant]
     Indication: OSTEOPOROSIS
     Dates: start: 20090529

REACTIONS (5)
  - ASPARTATE AMINOTRANSFERASE INCREASED [None]
  - BLOOD UREA ABNORMAL [None]
  - MALIGNANT MELANOMA [None]
  - RED BLOOD CELL COUNT DECREASED [None]
  - SKIN GRAFT [None]
